FAERS Safety Report 7070336-7 (Version None)
Quarter: 2010Q4

REPORT INFORMATION
  Report Type: 
  Country: None (occurrence: None)
  Receive Date: 20101028
  Receipt Date: 20101019
  Transmission Date: 20110411
  Serious: No
  Sender: FDA-Public Use
  Company Number: US-WYE-H18259810

PATIENT
  Age: 71 Year
  Sex: Female
  Weight: 54.03 kg

DRUGS (3)
  1. ADVIL [Suspect]
     Indication: BACK PAIN
     Dosage: 1-2 TABLETS DAILY FOR THREE DAYS
     Route: 048
     Dates: start: 20080101, end: 20080101
  2. CRESTOR [Concomitant]
  3. METOPROLOL [Concomitant]

REACTIONS (1)
  - HEADACHE [None]
